FAERS Safety Report 7224247-4 (Version None)
Quarter: 2011Q1

REPORT INFORMATION
  Report Type: 
  Country: None (occurrence: None)
  Receive Date: 20110113
  Receipt Date: 20101230
  Transmission Date: 20110831
  Serious: Yes (Death, Hospitalization)
  Sender: FDA-Public Use
  Company Number: US-RANBAXY-2006RR-01503

PATIENT
  Age: 59 Year
  Sex: Male

DRUGS (9)
  1. ACETAMINOPHEN AND HYDROCODONE BITARTRATE [Concomitant]
     Dosage: 5/500 MG
  2. NAPROXEN [Concomitant]
     Indication: OSTEOARTHRITIS
     Dosage: 500 MG, QD
  3. SILDENAFIL [Concomitant]
     Indication: ERECTILE DYSFUNCTION
     Dosage: 25 MG, PRN
  4. ATORVASTATIN [Concomitant]
     Indication: HYPERLIPIDAEMIA
     Dosage: 20 MG, QD
  5. TESTOSTERONE [Concomitant]
     Dosage: 400 MG, MONTHLY
  6. TRIAMTERENE AND HYDROCHLOROTHIAZIDE [Concomitant]
     Indication: HYPERTENSION
     Dosage: 75/50 MG/DAY
  7. AMOXICILLIN AND CLAVULANATE POTASSIUM [Suspect]
     Indication: CELLULITIS
     Dosage: 500/125 MG
     Dates: start: 20030606, end: 20030618
  8. AMOXICILLIN [Suspect]
     Dosage: 500 MG, TID
     Dates: start: 20030705
  9. ATENOLOL [Concomitant]
     Indication: HYPERTENSION
     Dosage: 100 MG, QD

REACTIONS (4)
  - RESPIRATORY FAILURE [None]
  - HYPOTENSION [None]
  - ACUTE HEPATIC FAILURE [None]
  - MULTI-ORGAN FAILURE [None]
